FAERS Safety Report 23300613 (Version 5)
Quarter: 2024Q1

REPORT INFORMATION
  Report Type: Spontaneous
  Country: GB (occurrence: GB)
  Receive Date: 20231215
  Receipt Date: 20240322
  Transmission Date: 20240410
  Serious: Yes (Other)
  Sender: FDA-Public Use
  Company Number: GB-BAXTER-2023BAX038212

PATIENT
  Sex: Female

DRUGS (6)
  1. SODIUM CHLORIDE [Suspect]
     Active Substance: SODIUM CHLORIDE
     Indication: Medication dilution
     Dosage: AT AN UNSPECIFIED DOSE 6 WEEKLY
     Route: 042
     Dates: end: 20240110
  2. SODIUM CHLORIDE [Suspect]
     Active Substance: SODIUM CHLORIDE
     Dosage: AT AN UNSPECIFIED DOSE 6 WEEKLY
     Route: 042
  3. WATER FOR INJECTION [Suspect]
     Active Substance: WATER
     Indication: Medication dilution
     Dosage: AT AN UNSPECIFIED DOSE 6 WEEKLY
     Route: 042
     Dates: end: 20240110
  4. WATER FOR INJECTION [Suspect]
     Active Substance: WATER
     Dosage: AT AN UNSPECIFIED DOSE 6 WEEKLY
     Route: 042
  5. INFLIXIMAB [Suspect]
     Active Substance: INFLIXIMAB
     Indication: Crohn^s disease
     Dosage: 290 MG, 6 WEEKLY
     Route: 042
     Dates: end: 20240110
  6. INFLIXIMAB [Suspect]
     Active Substance: INFLIXIMAB
     Dosage: 290 MG, 6 WEEKLY
     Route: 042

REACTIONS (6)
  - Lower respiratory tract infection [Unknown]
  - Blood test abnormal [Not Recovered/Not Resolved]
  - Urinary tract infection [Recovered/Resolved]
  - Cough [Recovered/Resolved]
  - Nasopharyngitis [Recovered/Resolved]
  - Product dose omission issue [Unknown]
